FAERS Safety Report 12999531 (Version 1)
Quarter: 2016Q4

REPORT INFORMATION
  Report Type: Spontaneous
  Country: US (occurrence: US)
  Receive Date: 20161205
  Receipt Date: 20161205
  Transmission Date: 20170207
  Serious: Yes (Hospitalization)
  Sender: FDA-Public Use
  Company Number: US-HAEMONETICS CORP-1060430

PATIENT
  Age: 28 Year
  Sex: Female
  Weight: 12.73 kg

DRUGS (1)
  1. HAEMONETICS ANTICOAGULANT SODIUM CITRATE [Suspect]
     Active Substance: TRISODIUM CITRATE DIHYDRATE
     Indication: ANTICOAGULANT THERAPY
     Route: 042
     Dates: start: 20161116, end: 20161116

REACTIONS (9)
  - Syncope [None]
  - Nausea [None]
  - Feeling hot [None]
  - Dizziness [None]
  - Seizure [Unknown]
  - Hyperhidrosis [None]
  - Procedural complication [None]
  - Pallor [None]
  - Vomiting [None]

NARRATIVE: CASE EVENT DATE: 20161116
